FAERS Safety Report 5147683-9 (Version None)
Quarter: 2006Q4

REPORT INFORMATION
  Report Type: 
  Country: None (occurrence: None)
  Receive Date: 20061108
  Receipt Date: 20061108
  Transmission Date: 20070319
  Serious: Yes (Other)
  Sender: FDA-Public Use
  Company Number: None

PATIENT
  Age: 77 Year
  Sex: Male

DRUGS (11)
  1. REVLIMID [Suspect]
     Indication: MULTIPLE MYELOMA
     Dosage: 25MG   DAILY   PO
     Route: 048
     Dates: start: 20060901, end: 20061015
  2. OMEPRAZOLE [Concomitant]
  3. LOVASTATIN [Concomitant]
  4. FUROSEMIDE [Concomitant]
  5. WARFARIN SODIUM [Concomitant]
  6. DEXAMETHASONE TAB [Concomitant]
  7. MORPHINE SULFATE [Concomitant]
  8. FLOMAX [Concomitant]
  9. METOPROLOL TARTRATE [Concomitant]
  10. K-TAB [Concomitant]
  11. PROCRIT [Concomitant]

REACTIONS (1)
  - PANCYTOPENIA [None]
